FAERS Safety Report 9384106 (Version 1)
Quarter: 2013Q3

REPORT INFORMATION
  Report Type: Other
  Country: ES (occurrence: ES)
  Receive Date: 20130705
  Receipt Date: 20130705
  Transmission Date: 20140515
  Serious: Yes (Other)
  Sender: FDA-Public Use
  Company Number: ES-BRISTOL-MYERS SQUIBB COMPANY-19069228

PATIENT
  Age: 39 Year
  Sex: Female

DRUGS (2)
  1. PACLITAXEL [Suspect]
     Indication: BREAST CANCER METASTATIC
     Dosage: GIVEN ON DAY 1,8 AND 15 FOLLOWED BY A 1-WEEK REST PEROID
     Route: 042
  2. GEMCITABINE [Suspect]
     Indication: BREAST CANCER METASTATIC
     Dosage: GIVEN ON DAY 1,8 AND 15 FOLLOWED BY A 1-WEEK REST PEROID
     Route: 042

REACTIONS (1)
  - Cystoid macular oedema [Recovered/Resolved]
